FAERS Safety Report 8663570 (Version 12)
Quarter: 2014Q2

REPORT INFORMATION
  Report Type: Report from Study
  Country: CA (occurrence: CA)
  Receive Date: 20120713
  Receipt Date: 20140414
  Transmission Date: 20141212
  Serious: Yes (Other)
  Sender: FDA-Public Use
  Company Number: PHHY2012CA051576

PATIENT
  Age: 56 Year
  Sex: Male

DRUGS (1)
  1. GILENYA [Suspect]
     Indication: RELAPSING-REMITTING MULTIPLE SCLEROSIS
     Dosage: 0.5 MG, QD
     Route: 048
     Dates: start: 20120517

REACTIONS (20)
  - Blood cholesterol increased [Not Recovered/Not Resolved]
  - Low density lipoprotein increased [Recovering/Resolving]
  - Astigmatism [Unknown]
  - Vision blurred [Recovering/Resolving]
  - Head discomfort [Recovering/Resolving]
  - Dyspepsia [Unknown]
  - Tinnitus [Unknown]
  - Musculoskeletal pain [Unknown]
  - Musculoskeletal stiffness [Recovering/Resolving]
  - Urine analysis abnormal [Unknown]
  - Nausea [Recovering/Resolving]
  - Chest discomfort [Recovering/Resolving]
  - Multiple sclerosis relapse [Unknown]
  - Fatigue [Recovering/Resolving]
  - Dizziness [Recovering/Resolving]
  - Dyspnoea [Recovered/Resolved]
  - Blood pressure increased [Recovering/Resolving]
  - Back pain [Recovered/Resolved]
  - Headache [Recovering/Resolving]
  - Eye pain [Recovered/Resolved]
